FAERS Safety Report 7270701-9 (Version None)
Quarter: 2011Q1

REPORT INFORMATION
  Report Type: 
  Country: None (occurrence: None)
  Receive Date: 20110202
  Receipt Date: 20110128
  Transmission Date: 20110831
  Serious: Yes (Life-Threatening)
  Sender: FDA-Public Use
  Company Number: B0696473A

PATIENT
  Sex: Male

DRUGS (13)
  1. DEPAMIDE [Suspect]
     Dosage: 300MG THREE TIMES PER DAY
     Route: 048
     Dates: end: 20110106
  2. TAHOR [Concomitant]
     Route: 065
  3. AUGMENTIN '125' [Suspect]
     Indication: INFECTION
     Dosage: 1G THREE TIMES PER DAY
     Route: 042
     Dates: start: 20101229, end: 20101231
  4. INIPOMP [Concomitant]
     Dosage: 40MG UNKNOWN
     Route: 065
  5. OFLOCET [Suspect]
     Indication: INFECTION
     Dosage: 200MG TWICE PER DAY
     Route: 042
     Dates: start: 20101229, end: 20101231
  6. JANUVIA [Suspect]
     Dosage: 1UNIT PER DAY
     Route: 048
     Dates: start: 20101222, end: 20110102
  7. ATARAX [Suspect]
     Dosage: 50MG AT NIGHT
     Route: 048
     Dates: end: 20110101
  8. XANAX [Suspect]
     Dosage: .25MG TWICE PER DAY
     Route: 048
     Dates: end: 20110105
  9. XATRAL [Suspect]
     Dosage: 10MG PER DAY
     Route: 048
     Dates: end: 20110104
  10. LOVENOX [Suspect]
     Dosage: .6ML PER DAY
     Route: 058
     Dates: start: 20100901, end: 20110103
  11. LEVEMIR [Concomitant]
     Route: 065
  12. LASIX [Concomitant]
     Route: 065
  13. NOVONORM [Suspect]
     Dosage: 5MG PER DAY
     Route: 048
     Dates: end: 20110102

REACTIONS (2)
  - THROMBOCYTOPENIA [None]
  - PURPURA [None]
